FAERS Safety Report 20659830 (Version 1)
Quarter: 2022Q1

REPORT INFORMATION
  Report Type: Spontaneous
  Country: US (occurrence: US)
  Receive Date: 20220331
  Receipt Date: 20220331
  Transmission Date: 20220423
  Serious: No
  Sender: FDA-Public Use
  Company Number: US-PFIZER INC-2021797246

PATIENT
  Age: 54 Year
  Sex: Female

DRUGS (4)
  1. IBRANCE [Suspect]
     Active Substance: PALBOCICLIB
     Dosage: 125 MG
  2. IBRANCE [Suspect]
     Active Substance: PALBOCICLIB
     Dosage: 100 MG
     Dates: start: 20210519
  3. IBRANCE [Suspect]
     Active Substance: PALBOCICLIB
     Dosage: 100 MG
     Dates: start: 20210523
  4. LEVAQUIN [Suspect]
     Active Substance: LEVOFLOXACIN
     Dosage: UNK

REACTIONS (9)
  - Product dose omission issue [Unknown]
  - Gallbladder disorder [Unknown]
  - Oral pain [Unknown]
  - Feeling abnormal [Unknown]
  - Pyrexia [Unknown]
  - Chills [Unknown]
  - Alopecia [Unknown]
  - Laboratory test abnormal [Unknown]
  - Sinusitis [Unknown]

NARRATIVE: CASE EVENT DATE: 20210619
